FAERS Safety Report 9585751 (Version 3)
Quarter: 2013Q4

REPORT INFORMATION
  Report Type: Spontaneous
  Country: CH (occurrence: None)
  Receive Date: 20131001
  Receipt Date: 20131217
  Transmission Date: 20140711
  Serious: Yes (Other)
  Sender: FDA-Public Use
  Company Number: 20130505

PATIENT
  Age: 65 Year
  Sex: Female

DRUGS (1)
  1. FERINJECT [Suspect]
     Indication: IRON DEFICIENCY ANAEMIA
     Route: 041
     Dates: start: 20130509

REACTIONS (5)
  - Overdose [None]
  - Iron overload [None]
  - Transaminases increased [None]
  - Cholestasis [None]
  - Hepatocellular injury [None]
